FAERS Safety Report 13415899 (Version 1)
Quarter: 2017Q2

REPORT INFORMATION
  Report Type: Spontaneous
  Country: US (occurrence: US)
  Receive Date: 20170407
  Receipt Date: 20170407
  Transmission Date: 20170830
  Serious: No
  Sender: FDA-Public Use
  Company Number: US-PFIZER INC-2017148264

PATIENT
  Age: 14 Year
  Sex: Male
  Weight: 58 kg

DRUGS (4)
  1. GENOTROPIN [Suspect]
     Active Substance: SOMATROPIN
     Indication: GROWTH HORMONE DEFICIENCY
     Dosage: 0.8 MG, DAILY
     Route: 058
     Dates: start: 201112
  2. INSULIN [Concomitant]
     Active Substance: INSULIN NOS
     Dosage: UNK, (1 UNIT/CC)
     Route: 040
  3. GENOTROPIN [Suspect]
     Active Substance: SOMATROPIN
     Indication: HYPOPITUITARISM
  4. LEVODOPA [Concomitant]
     Active Substance: LEVODOPA
     Dosage: 250 MG, UNK
     Route: 048

REACTIONS (2)
  - Drug ineffective [Unknown]
  - Weight increased [Unknown]
